FAERS Safety Report 7658409-9 (Version None)
Quarter: 2011Q3

REPORT INFORMATION
  Report Type: 
  Country: None (occurrence: None)
  Receive Date: 20110805
  Receipt Date: 20110727
  Transmission Date: 20111222
  Serious: Yes (Other)
  Sender: FDA-Public Use
  Company Number: US-ASTELLAS-2011US003011

PATIENT
  Age: 3 Month
  Sex: Male

DRUGS (2)
  1. SOLUTIONS FOR PARENTERAL NUTRITION [Concomitant]
     Indication: NUTRITIONAL SUPPORT
     Dosage: UNK
     Route: 065
  2. AMBISOME [Suspect]
     Indication: ZYGOMYCOSIS
     Dosage: 10 MG/KG, UID/QD
     Route: 042
     Dates: start: 20110317, end: 20110615

REACTIONS (4)
  - HEPATIC FAILURE [None]
  - BLOOD PRESSURE INCREASED [None]
  - RENAL FAILURE ACUTE [None]
  - DRUG INEFFECTIVE [None]
